FAERS Safety Report 10349440 (Version 1)
Quarter: 2014Q3

REPORT INFORMATION
  Report Type: Spontaneous
  Country: GR (occurrence: None)
  Receive Date: 20140728
  Receipt Date: 20140728
  Transmission Date: 20150326
  Serious: Yes (Death)
  Sender: FDA-Public Use
  Company Number: NGX_02508_2014

PATIENT
  Sex: Female

DRUGS (1)
  1. QUTENZA [Suspect]
     Active Substance: CAPSAICIN
     Indication: NEUROPATHY PERIPHERAL
     Dosage: 1 DF CUTANEOUS PATCH , TRANSDERMAL
     Dates: start: 20140318, end: 20140318

REACTIONS (2)
  - Pancreatic carcinoma [None]
  - Disease progression [None]

NARRATIVE: CASE EVENT DATE: 2014
